FAERS Safety Report 10244996 (Version 1)
Quarter: 2014Q2

REPORT INFORMATION
  Report Type: Spontaneous
  Country: US (occurrence: US)
  Receive Date: 20140618
  Receipt Date: 20140618
  Transmission Date: 20141212
  Serious: No
  Sender: FDA-Public Use
  Company Number: US-GALDERMA-US14001006

PATIENT
  Age: 50 Year
  Sex: Female

DRUGS (5)
  1. MIRVASO (BRIMONIDINE) TOPICAL GEL, 0.33% [Suspect]
     Indication: ROSACEA
     Dosage: 0.33%
     Route: 061
     Dates: start: 20140311, end: 20140313
  2. ORACEA (DOXYCYCLINE, USP) CAPSULES 40 MG [Suspect]
     Indication: ROSACEA
     Dosage: 40 MG
     Route: 048
     Dates: start: 20140312
  3. ATIVAN (LORAZEPAM) [Concomitant]
     Indication: BACK DISORDER
     Route: 048
     Dates: start: 2009
  4. RESTORIL (TEMAZEPAM) [Concomitant]
     Indication: SLEEP DISORDER
     Route: 048
     Dates: start: 2009
  5. BACLOFEN [Concomitant]
     Indication: BACK DISORDER
     Route: 048
     Dates: start: 2009

REACTIONS (9)
  - Rash macular [Recovering/Resolving]
  - Eye irritation [Recovering/Resolving]
  - Tinnitus [Not Recovered/Not Resolved]
  - Paraesthesia oral [Recovered/Resolved]
  - Paraesthesia [Recovering/Resolving]
  - Flushing [Recovering/Resolving]
  - Skin warm [Recovering/Resolving]
  - Erythema [Recovering/Resolving]
  - Skin burning sensation [Recovered/Resolved]
